FAERS Safety Report 11641288 (Version 5)
Quarter: 2016Q1

REPORT INFORMATION
  Report Type: Spontaneous
  Country: JP (occurrence: JP)
  Receive Date: 20151019
  Receipt Date: 20160304
  Transmission Date: 20160525
  Serious: Yes (Hospitalization)
  Sender: FDA-Public Use
  Company Number: JP-JNJFOC-20151009998

PATIENT
  Age: 24 Year
  Sex: Male
  Weight: 59 kg

DRUGS (6)
  1. LAC-B [Suspect]
     Active Substance: BIFIDOBACTERIUM SPP.
     Indication: CROHN^S DISEASE
     Dosage: 3 DOSAGE FORMS
     Route: 048
     Dates: start: 20150122
  2. ELENTAL [Suspect]
     Active Substance: AMINO ACIDS\CARBOHYDRATES\MINERALS\SOYBEAN OIL\VITAMINS
     Indication: CROHN^S DISEASE
     Dosage: 4 DOSAGE FORM
     Route: 048
     Dates: start: 20150123
  3. REMICADE [Suspect]
     Active Substance: INFLIXIMAB
     Indication: CROHN^S DISEASE
     Dosage: FIRST DOSE (THERAPY DURATION WAS 1 DAY)
     Route: 042
     Dates: start: 20150820, end: 20150820
  4. CLINORIL [Concomitant]
     Active Substance: SULINDAC
     Route: 065
     Dates: start: 20150901
  5. PENTASA [Suspect]
     Active Substance: MESALAMINE
     Indication: CROHN^S DISEASE
     Route: 048
     Dates: start: 20150120
  6. AZATHIOPRINE. [Suspect]
     Active Substance: AZATHIOPRINE
     Indication: CROHN^S DISEASE
     Route: 048
     Dates: start: 20150821

REACTIONS (1)
  - Rhabdomyolysis [Recovering/Resolving]

NARRATIVE: CASE EVENT DATE: 20150831
